FAERS Safety Report 15682997 (Version 14)
Quarter: 2021Q1

REPORT INFORMATION
  Report Type: Spontaneous
  Country: JP (occurrence: JP)
  Receive Date: 20181203
  Receipt Date: 20210312
  Transmission Date: 20210419
  Serious: Yes (Life-Threatening, Hospitalization, Disabling, Other)
  Sender: FDA-Public Use
  Company Number: JP-BRISTOL-MYERS SQUIBB COMPANY-BMS-2018-110304

PATIENT
  Age: 70 Year
  Sex: Male
  Weight: 72.1 kg

DRUGS (2)
  1. YERVOY [Suspect]
     Active Substance: IPILIMUMAB
     Indication: METASTATIC RENAL CELL CARCINOMA
     Dosage: 75 MILLIGRAM
     Route: 041
     Dates: start: 20181022, end: 20181112
  2. OPDIVO [Suspect]
     Active Substance: NIVOLUMAB
     Indication: METASTATIC RENAL CELL CARCINOMA
     Dosage: 240 MILLIGRAM
     Route: 041
     Dates: start: 20181022, end: 20181112

REACTIONS (5)
  - Cytokine release syndrome [Recovered/Resolved]
  - Oral mucosal eruption [Recovered/Resolved]
  - Immune-mediated enterocolitis [Recovered/Resolved]
  - Dermatomyositis [Recovered/Resolved with Sequelae]
  - Thrombocytopenia [Recovering/Resolving]

NARRATIVE: CASE EVENT DATE: 20181122
